FAERS Safety Report 7569021-4 (Version None)
Quarter: 2011Q2

REPORT INFORMATION
  Report Type: 
  Country: None (occurrence: None)
  Receive Date: 20110623
  Receipt Date: 20110615
  Transmission Date: 20111010
  Serious: Yes (Other)
  Sender: FDA-Public Use
  Company Number: US-AMGEN-USASP2011031025

PATIENT
  Age: 47 Year
  Sex: Female

DRUGS (1)
  1. ENBREL [Suspect]
     Indication: RHEUMATOID ARTHRITIS
     Dosage: 50 MG, QWK
     Dates: start: 20000101

REACTIONS (7)
  - RHEUMATOID ARTHRITIS [None]
  - RASH PAPULAR [None]
  - RASH PRURITIC [None]
  - DEPRESSION [None]
  - HEADACHE [None]
  - THYROID NEOPLASM [None]
  - DYSPHAGIA [None]
